FAERS Safety Report 14787321 (Version 4)
Quarter: 2018Q4

REPORT INFORMATION
  Report Type: Report from Study
  Country: US (occurrence: US)
  Receive Date: 20180421
  Receipt Date: 20181206
  Transmission Date: 20190204
  Serious: Yes (Hospitalization, Other)
  Sender: FDA-Public Use
  Company Number: PHEH2018US015520

PATIENT
  Sex: Female

DRUGS (2)
  1. ENTRESTO [Suspect]
     Active Substance: SACUBITRIL\VALSARTAN
     Indication: CARDIAC FAILURE
     Dosage: UNK
     Route: 048
  2. ENTRESTO [Suspect]
     Active Substance: SACUBITRIL\VALSARTAN
     Indication: ATRIAL FIBRILLATION

REACTIONS (7)
  - Arthritis [Unknown]
  - Intervertebral disc protrusion [Unknown]
  - Pulmonary hypertension [Unknown]
  - Leukaemia [Unknown]
  - Arthropathy [Unknown]
  - Radiation injury [Unknown]
  - Fatigue [Unknown]
